FAERS Safety Report 4494034-9 (Version None)
Quarter: 2004Q4

REPORT INFORMATION
  Report Type: 
  Country: None (occurrence: None)
  Receive Date: 20041105
  Receipt Date: 20041007
  Transmission Date: 20050328
  Serious: Yes (Hospitalization)
  Sender: FDA-Public Use
  Company Number: JP-MERCK-0410USA01556

PATIENT
  Age: 72 Year
  Sex: Female

DRUGS (11)
  1. PEPCID [Suspect]
     Route: 042
     Dates: start: 20040928, end: 20040928
  2. SULPERAZONE [Suspect]
     Indication: INFECTION PROPHYLAXIS
     Route: 042
     Dates: start: 20040928, end: 20040928
  3. PALUX [Suspect]
     Indication: CARDIOVASCULAR DISORDER
     Route: 042
     Dates: start: 20040928, end: 20040930
  4. VITAMINS (UNSPECIFIED) [Concomitant]
     Route: 048
     Dates: end: 20040930
  5. BAYASPIRIN [Concomitant]
     Route: 048
     Dates: start: 20040607, end: 20040930
  6. NORPACE [Concomitant]
     Route: 048
     Dates: start: 20040607, end: 20040930
  7. ALLOPURINOL TAB [Concomitant]
     Route: 048
     Dates: start: 20040607, end: 20040930
  8. COZAAR [Concomitant]
     Route: 048
     Dates: start: 20040625, end: 20040930
  9. ALLEGRA [Concomitant]
     Route: 048
     Dates: start: 20040625, end: 20040930
  10. LASIX [Concomitant]
     Route: 048
     Dates: start: 20040607, end: 20040930
  11. SODIUM BICARBONATE [Concomitant]
     Route: 048
     Dates: start: 20040625, end: 20040930

REACTIONS (1)
  - HEPATITIS ACUTE [None]
